FAERS Safety Report 16706339 (Version 3)
Quarter: 2020Q3

REPORT INFORMATION
  Report Type: Spontaneous
  Country: BR (occurrence: BR)
  Receive Date: 20190815
  Receipt Date: 20200814
  Transmission Date: 20201102
  Serious: Yes (Other)
  Sender: FDA-Public Use
  Company Number: BR-PFIZER INC-2016475609

PATIENT
  Age: 62 Year
  Sex: Female
  Weight: 72 kg

DRUGS (15)
  1. FRONTAL [Suspect]
     Active Substance: ALPRAZOLAM
     Indication: ANXIETY
     Dosage: 2 MG, AT NIGHT
  2. FRONTAL [Suspect]
     Active Substance: ALPRAZOLAM
     Indication: ANXIOLYTIC THERAPY
     Dosage: UNK, DAILY (ALL DAYS AS NEEDED)
     Dates: start: 1999
  3. MOTORE [Concomitant]
     Indication: ARTHRALGIA
  4. REMILEV [Concomitant]
     Indication: ANTIDEPRESSANT THERAPY
     Dosage: 2 DF, 1X/DAY (2 REMILEV IN THE MORNING)
     Dates: start: 201906
  5. SOMALGIN [Concomitant]
     Active Substance: ASPIRIN\DIHYDROXYALUMINUM AMINOACETATE ANHYDROUS\MAGNESIUM CARBONATE
     Indication: ANTIPLATELET THERAPY
     Dosage: UNK
     Dates: start: 2018
  6. MOTORE [Concomitant]
     Indication: ANTIINFLAMMATORY THERAPY
     Dosage: UNK
  7. FRONTAL [Suspect]
     Active Substance: ALPRAZOLAM
     Indication: DEPRESSION
     Dosage: HALF 2MG TABLET DURING THE MORNING (1MG) AND ONE TABLET (2MG) AT NIGHT
  8. JARDIANCE [Concomitant]
     Active Substance: EMPAGLIFLOZIN
     Indication: DIABETES MELLITUS
     Dosage: UNK
     Dates: start: 2017
  9. VELIJA [Concomitant]
     Active Substance: DULOXETINE HYDROCHLORIDE
     Indication: ANTIDEPRESSANT THERAPY
     Dosage: UNK
  10. ARTRODAR [Concomitant]
     Active Substance: DIACEREIN
     Indication: ARTHRALGIA
     Dosage: UNK
  11. THIOCTACID 600 T [Concomitant]
     Indication: DIABETES MELLITUS
     Dosage: UNK
  12. DIAMICRON [Concomitant]
     Active Substance: GLICLAZIDE
     Indication: DIABETES MELLITUS
     Dosage: UNK
     Dates: start: 2017
  13. GALVUS MET [Concomitant]
     Active Substance: METFORMIN HYDROCHLORIDE\VILDAGLIPTIN
     Indication: DIABETES MELLITUS
     Dosage: UNK
  14. TRAUMEEL [Concomitant]
     Indication: ARTHRALGIA
     Dosage: UNK
     Route: 060
  15. MIRTAX [CYCLOBENZAPRINE HYDROCHLORIDE] [Concomitant]
     Dosage: UNK, AS NEEDED

REACTIONS (10)
  - Crying [Not Recovered/Not Resolved]
  - Diabetes mellitus [Not Recovered/Not Resolved]
  - Loss of consciousness [Unknown]
  - Glaucoma [Not Recovered/Not Resolved]
  - Diabetic hyperglycaemic coma [Unknown]
  - Hyperglycaemia [Not Recovered/Not Resolved]
  - Product prescribing error [Unknown]
  - Intentional product misuse [Unknown]
  - Dizziness [Not Recovered/Not Resolved]
  - Drug ineffective [Unknown]

NARRATIVE: CASE EVENT DATE: 2007
